FAERS Safety Report 6421680-5 (Version None)
Quarter: 2009Q4

REPORT INFORMATION
  Report Type: 
  Country: None (occurrence: None)
  Receive Date: 20091029
  Receipt Date: 20091029
  Transmission Date: 20100525
  Serious: No
  Sender: FDA-Public Use
  Company Number: None

PATIENT
  Age: 9 Year
  Sex: Female
  Weight: 29.756 kg

DRUGS (1)
  1. AUGMENTIN '400' [Suspect]
     Indication: LYMPHADENITIS
     Dosage: 400 MG CHEWABLES BID PO
     Route: 048
     Dates: start: 20091007, end: 20091017

REACTIONS (1)
  - TOOTH DISCOLOURATION [None]
